FAERS Safety Report 21087301 (Version 1)
Quarter: 2022Q3

REPORT INFORMATION
  Report Type: Spontaneous
  Country: US (occurrence: None)
  Receive Date: 20220714
  Receipt Date: 20220714
  Transmission Date: 20221027
  Serious: No
  Sender: FDA-Public Use
  Company Number: None

PATIENT
  Age: 49 Year
  Sex: Female

DRUGS (1)
  1. DIMETHYL FUMARATE [Suspect]
     Active Substance: DIMETHYL FUMARATE
     Dosage: FREQUENCY : TWICE A DAY;?
     Route: 048
     Dates: start: 202101

REACTIONS (5)
  - Flushing [None]
  - Hot flush [None]
  - Diarrhoea [None]
  - Nausea [None]
  - Headache [None]

NARRATIVE: CASE EVENT DATE: 20220614
